FAERS Safety Report 7034070-1 (Version None)
Quarter: 2010Q4

REPORT INFORMATION
  Report Type: 
  Country: None (occurrence: None)
  Receive Date: 20101007
  Receipt Date: 20100930
  Transmission Date: 20110411
  Serious: Yes (Other)
  Sender: FDA-Public Use
  Company Number: US-B.I. PHARMACEUTICALS,INC./RIDGEFIELD-2010-BP-08456BP

PATIENT
  Sex: Female

DRUGS (3)
  1. ZANTAC 150 [Suspect]
     Indication: GASTROOESOPHAGEAL REFLUX DISEASE
     Dosage: 300 MG
     Route: 048
     Dates: start: 20090901
  2. ZANTAC 150 [Suspect]
  3. ZANTAC 150 [Suspect]
     Indication: DYSPEPSIA

REACTIONS (6)
  - AMPHETAMINES POSITIVE [None]
  - CONFUSIONAL STATE [None]
  - GALLBLADDER DISORDER [None]
  - HEADACHE [None]
  - OPIATES POSITIVE [None]
  - VERTIGO [None]
